FAERS Safety Report 11011234 (Version 1)
Quarter: 2015Q2

REPORT INFORMATION
  Report Type: Spontaneous
  Country: US (occurrence: US)
  Receive Date: 20150410
  Receipt Date: 20150410
  Transmission Date: 20150821
  Serious: No
  Sender: FDA-Public Use
  Company Number: US-PFIZER INC-2015121004

PATIENT
  Age: 42 Year
  Sex: Female

DRUGS (1)
  1. IBRANCE [Suspect]
     Active Substance: PALBOCICLIB
     Indication: BREAST CANCER
     Dosage: 125MG, ONCE DAILY WITH FOOD FOR 21 DAYS, THEN 7 DAYS OFF
     Route: 048
     Dates: start: 20150307

REACTIONS (4)
  - Anxiety [Unknown]
  - Nausea [Unknown]
  - Pain [Unknown]
  - Alopecia [Unknown]

NARRATIVE: CASE EVENT DATE: 2015
